FAERS Safety Report 22117090 (Version 4)
Quarter: 2024Q3

REPORT INFORMATION
  Report Type: Spontaneous
  Country: US (occurrence: US)
  Receive Date: 20230320
  Receipt Date: 20240704
  Transmission Date: 20241017
  Serious: Yes (Hospitalization, Other)
  Sender: PFIZER
  Company Number: US-PFIZER INC-PV202200124784

PATIENT
  Age: 73 Year
  Sex: Male
  Weight: 80.726 kg

DRUGS (4)
  1. VYNDAMAX [Suspect]
     Active Substance: TAFAMIDIS
     Indication: Cardiac amyloidosis
     Dosage: 61 MG (1X)
     Dates: start: 20220708
  2. VYNDAMAX [Suspect]
     Active Substance: TAFAMIDIS
     Indication: Amyloidosis
  3. DOFETILIDE [Concomitant]
     Active Substance: DOFETILIDE
     Dosage: UNK
     Dates: start: 20220712
  4. ELIQUIS [Concomitant]
     Active Substance: APIXABAN
     Dosage: 5 MG
     Dates: start: 20220623

REACTIONS (4)
  - Atrial flutter [Unknown]
  - Cardiac failure [Unknown]
  - Myocardial fibrosis [Unknown]
  - Gait disturbance [Recovering/Resolving]
